FAERS Safety Report 16401761 (Version 1)
Quarter: 2019Q2

REPORT INFORMATION
  Report Type: Report from Study
  Country: None (occurrence: US)
  Receive Date: 20190606
  Receipt Date: 20190606
  Transmission Date: 20190711
  Serious: Yes (Other)
  Sender: FDA-Public Use
  Company Number: US-ABBVIE-19K-163-2808095-00

PATIENT
  Sex: Female

DRUGS (1)
  1. VENCLEXTA [Suspect]
     Active Substance: VENETOCLAX
     Indication: ACUTE MYELOID LEUKAEMIA
     Route: 048
     Dates: start: 20190513, end: 20190530

REACTIONS (3)
  - Diarrhoea [Not Recovered/Not Resolved]
  - Haemoglobin decreased [Unknown]
  - Chills [Unknown]

NARRATIVE: CASE EVENT DATE: 2019
